FAERS Safety Report 13475792 (Version 1)
Quarter: 2017Q2

REPORT INFORMATION
  Report Type: Spontaneous
  Country: US (occurrence: US)
  Receive Date: 20170425
  Receipt Date: 20170425
  Transmission Date: 20170830
  Serious: Yes (Other)
  Sender: FDA-Public Use
  Company Number: US-MALLINCKRODT-T201701774

PATIENT
  Age: 34 Year
  Sex: Male

DRUGS (6)
  1. KETAMINE [Concomitant]
     Active Substance: KETAMINE
  2. VECURONIUM [Concomitant]
     Active Substance: VECURONIUM BROMIDE
  3. PROPOFOL. [Concomitant]
     Active Substance: PROPOFOL
  4. INOMAX [Suspect]
     Active Substance: NITRIC OXIDE
     Indication: PRODUCT USED FOR UNKNOWN INDICATION
     Dosage: 60PPM
     Route: 057
  5. EPINEPHRINE. [Concomitant]
     Active Substance: EPINEPHRINE
     Indication: ACUTE RESPIRATORY DISTRESS SYNDROME
  6. HEPARIN [Suspect]
     Active Substance: HEPARIN SODIUM

REACTIONS (1)
  - Pulmonary haemorrhage [Unknown]
